FAERS Safety Report 5025838-1 (Version None)
Quarter: 2006Q2

REPORT INFORMATION
  Report Type: 
  Country: None (occurrence: None)
  Receive Date: 20060614
  Receipt Date: 20060608
  Transmission Date: 20061013
  Serious: Yes (Hospitalization)
  Sender: FDA-Public Use
  Company Number: DE-SANOFI-SYNTHELABO-A04200600607

PATIENT
  Sex: Male

DRUGS (1)
  1. ELOXATIN [Suspect]
     Indication: DRUG USE FOR UNKNOWN INDICATION
     Dosage: UNK
     Route: 041
     Dates: start: 20060101

REACTIONS (5)
  - C-REACTIVE PROTEIN INCREASED [None]
  - CATHETER RELATED COMPLICATION [None]
  - CHILLS [None]
  - PYREXIA [None]
  - SUBCLAVIAN VEIN THROMBOSIS [None]
